FAERS Safety Report 17867608 (Version 1)
Quarter: 2020Q2

REPORT INFORMATION
  Report Type: Spontaneous
  Country: US (occurrence: US)
  Receive Date: 20200605
  Receipt Date: 20200605
  Transmission Date: 20200714
  Serious: Yes (Other)
  Sender: FDA-Public Use
  Company Number: NVSC2020US157408

PATIENT

DRUGS (3)
  1. METHOTREXATE. [Suspect]
     Active Substance: METHOTREXATE
     Indication: OSTEOSARCOMA
     Dosage: 12 G/M2, QD (OVER 4 HOURS ON DAY 1 FOLLOWED BY LEUCOVORIN RESCUE)
     Route: 042
  2. DOXORUBICIN [Suspect]
     Active Substance: DOXORUBICIN
     Indication: OSTEOSARCOMA
     Dosage: 25 MG/M2, QD (OVER 72 HOURS ON DAYS 1 THROUGH 3)
     Route: 041
  3. CISPLATIN. [Suspect]
     Active Substance: CISPLATIN
     Indication: OSTEOSARCOMA
     Dosage: 60 MG/M2, QD OVER 4 HOURS DAY 1 AND DAY 2)
     Route: 042

REACTIONS (3)
  - Malignant neoplasm progression [Unknown]
  - Osteosarcoma [Unknown]
  - Product use in unapproved indication [Unknown]
